FAERS Safety Report 5889286-4 (Version None)
Quarter: 2008Q3

REPORT INFORMATION
  Report Type: 
  Country: None (occurrence: None)
  Receive Date: 20080917
  Receipt Date: 20080905
  Transmission Date: 20090109
  Serious: Yes (Other)
  Sender: FDA-Public Use
  Company Number: SPV1-2008-01922

PATIENT
  Sex: Female

DRUGS (4)
  1. CARBATROL [Suspect]
     Indication: CONVULSION
     Dosage: 200 MG, 9-10 CAPSULES DAILY, ORAL
     Route: 048
     Dates: start: 19830101
  2. CARBATROL [Suspect]
     Indication: MOVEMENT DISORDER
     Dosage: 200 MG, 9-10 CAPSULES DAILY, ORAL
     Route: 048
     Dates: start: 19830101
  3. CARBATROL [Suspect]
     Indication: PARTIAL SEIZURES
     Dosage: 200 MG, 9-10 CAPSULES DAILY, ORAL
     Route: 048
     Dates: start: 19830101
  4. LORAZEPAM [Concomitant]

REACTIONS (4)
  - CONDITION AGGRAVATED [None]
  - CONVULSION [None]
  - PANIC ATTACK [None]
  - PHARMACEUTICAL PRODUCT COMPLAINT [None]
